FAERS Safety Report 6013627-0 (Version None)
Quarter: 2008Q4

REPORT INFORMATION
  Report Type: 
  Country: None (occurrence: None)
  Receive Date: 20081219
  Receipt Date: 20081208
  Transmission Date: 20090506
  Serious: Yes (Hospitalization)
  Sender: FDA-Public Use
  Company Number: CH-ROCHE-575694

PATIENT
  Sex: Male

DRUGS (3)
  1. METHOXY POLYETHYLENE GLYCOL-EPOETIN BETA [Suspect]
     Dosage: LAST DOSE PRIOR TO SAE WAS RECEIVED ON 06 AUGUST 2008.
     Route: 042
     Dates: start: 20080107
  2. METHOXY POLYETHYLENE GLYCOL-EPOETIN BETA [Suspect]
     Dosage: LAST DOSE PRIOR TO SAE WAS ON 06 OCTOBER 2008.
     Route: 042
  3. EPOETIN NOS [Concomitant]
     Dosage: RECEIVED DURING SCREENING PHASE.

REACTIONS (3)
  - ACUTE MYOCARDIAL INFARCTION [None]
  - CHEST PAIN [None]
  - GASTROENTERITIS [None]
